FAERS Safety Report 20324801 (Version 1)
Quarter: 2022Q1

REPORT INFORMATION
  Report Type: Spontaneous
  Country: US (occurrence: US)
  Receive Date: 20220111
  Receipt Date: 20220111
  Transmission Date: 20220423
  Serious: No
  Sender: FDA-Public Use
  Company Number: US-MYOVANT SCIENCES GMBH-2021MYSCI1100380

PATIENT
  Sex: Male
  Weight: 82.993 kg

DRUGS (3)
  1. ORGOVYX [Suspect]
     Active Substance: RELUGOLIX
     Indication: Prostate cancer recurrent
     Dosage: 360 MILLIGRAM, ONE TIME DOSE
     Route: 048
     Dates: start: 20210901, end: 20210901
  2. ORGOVYX [Suspect]
     Active Substance: RELUGOLIX
     Dosage: 120 MILLIGRAM, QD
     Route: 048
     Dates: start: 20210902
  3. BYSTOLIC [Concomitant]
     Active Substance: NEBIVOLOL HYDROCHLORIDE
     Indication: Hypertension
     Dosage: 10 MILLIGRAM, QD
     Route: 048
     Dates: start: 2016

REACTIONS (11)
  - Blood cholesterol increased [Not Recovered/Not Resolved]
  - Irritability [Unknown]
  - Sleep disorder [Unknown]
  - Glucose tolerance impaired [Unknown]
  - Hypertension [Unknown]
  - Glycosylated haemoglobin increased [Unknown]
  - Blood glucose increased [Not Recovered/Not Resolved]
  - Hot flush [Unknown]
  - Fatigue [Unknown]
  - Pollakiuria [Not Recovered/Not Resolved]
  - Peripheral sensory neuropathy [Unknown]
